FAERS Safety Report 4917306-X (Version None)
Quarter: 2006Q1

REPORT INFORMATION
  Report Type: 
  Country: None (occurrence: None)
  Receive Date: 20060221
  Receipt Date: 20050916
  Transmission Date: 20060701
  Serious: Yes (Hospitalization, Disabling)
  Sender: FDA-Public Use
  Company Number: US-MERCK-0509USA02457

PATIENT
  Age: 58 Year
  Sex: Male

DRUGS (1)
  1. VIOXX [Suspect]
     Route: 048
     Dates: start: 19990101, end: 20010101

REACTIONS (9)
  - CARDIAC ARREST [None]
  - CORONARY ARTERY DISEASE [None]
  - LARYNGEAL OEDEMA [None]
  - MYOCARDIAL INFARCTION [None]
  - NERVOUS SYSTEM DISORDER [None]
  - ORTHOSTATIC HYPOTENSION [None]
  - PULMONARY OEDEMA [None]
  - VENTRICULAR FIBRILLATION [None]
  - VENTRICULAR TACHYCARDIA [None]
